FAERS Safety Report 6422242-6 (Version None)
Quarter: 2009Q4

REPORT INFORMATION
  Report Type: 
  Country: None (occurrence: None)
  Receive Date: 20091029
  Receipt Date: 20091029
  Transmission Date: 20100525
  Serious: Yes (Disabling)
  Sender: FDA-Public Use
  Company Number: None

PATIENT
  Sex: Female
  Weight: 85.2762 kg

DRUGS (1)
  1. ARMIDEX 1 MG ASTRAZENECA [Suspect]
     Indication: BREAST CANCER
     Dosage: 1 MG 1 PER DIEM MOUTH
     Route: 048
     Dates: start: 20050111, end: 20070312

REACTIONS (2)
  - FALL [None]
  - SPINAL COLUMN STENOSIS [None]
